FAERS Safety Report 9553517 (Version 2)
Quarter: 2013Q3

REPORT INFORMATION
  Report Type: Spontaneous
  Country: US (occurrence: US)
  Receive Date: 20130925
  Receipt Date: 20130925
  Transmission Date: 20140515
  Serious: Yes (Other)
  Sender: FDA-Public Use
  Company Number: US-TEVA-383074USA

PATIENT
  Age: 21 Year
  Sex: Female
  Weight: 95.79 kg

DRUGS (2)
  1. PARAGARD 380A [Suspect]
     Indication: CONTRACEPTION
     Route: 015
     Dates: start: 20120319, end: 20130125
  2. FLONASE [Concomitant]

REACTIONS (4)
  - Pregnancy with contraceptive device [Unknown]
  - Embedded device [Recovered/Resolved]
  - Drug ineffective [Unknown]
  - Menstruation delayed [Not Recovered/Not Resolved]
